FAERS Safety Report 11465855 (Version 1)
Quarter: 2015Q3

REPORT INFORMATION
  Report Type: Spontaneous
  Country: US (occurrence: US)
  Receive Date: 20150907
  Receipt Date: 20150907
  Transmission Date: 20151125
  Serious: Yes (Hospitalization)
  Sender: FDA-Public Use
  Company Number: US-UNITED THERAPEUTICS-UNT-2015-010258

PATIENT
  Age: 34 Year
  Sex: Female
  Weight: 55.78 kg

DRUGS (5)
  1. REMODULIN [Suspect]
     Active Substance: TREPROSTINIL
     Indication: PULMONARY ARTERIAL HYPERTENSION
     Dosage: 0.073 ?G/KG/MIN, CONTINUING
     Route: 058
     Dates: start: 20150312
  2. REVATIO [Concomitant]
     Active Substance: SILDENAFIL CITRATE
     Indication: PRODUCT USED FOR UNKNOWN INDICATION
  3. REMODULIN [Suspect]
     Active Substance: TREPROSTINIL
     Dosage: UNK
  4. LETAIRIS [Concomitant]
     Active Substance: AMBRISENTAN
     Indication: PRODUCT USED FOR UNKNOWN INDICATION
  5. COUMADIN [Concomitant]
     Active Substance: WARFARIN SODIUM
     Indication: PRODUCT USED FOR UNKNOWN INDICATION

REACTIONS (7)
  - Cholelithiasis [Unknown]
  - Infusion site induration [Unknown]
  - Beta haemolytic streptococcal infection [Unknown]
  - Infusion site discharge [Unknown]
  - Infusion site erythema [Unknown]
  - Pyrexia [Unknown]
  - Infusion site infection [Unknown]

NARRATIVE: CASE EVENT DATE: 201508
